FAERS Safety Report 9392015 (Version 1)
Quarter: 2013Q3

REPORT INFORMATION
  Report Type: Spontaneous
  Country: US (occurrence: US)
  Receive Date: 20130709
  Receipt Date: 20130709
  Transmission Date: 20140515
  Serious: Yes (Other)
  Sender: FDA-Public Use
  Company Number: CHPA2013US010663

PATIENT
  Age: 67 Year
  Sex: Female

DRUGS (2)
  1. EXCEDRIN MIGRAINE [Suspect]
     Indication: MIGRAINE
     Dosage: 1 DF, PRN
     Route: 048
     Dates: end: 201201
  2. EXCEDRIN TENSION HEADACHE [Concomitant]
     Dosage: UNK, UNK
     Route: 048

REACTIONS (5)
  - Cartilage injury [Recovered/Resolved]
  - Road traffic accident [Recovered/Resolved]
  - Abdominal discomfort [Recovered/Resolved]
  - Inappropriate schedule of drug administration [Unknown]
  - Underdose [Unknown]
